FAERS Safety Report 10378403 (Version 1)
Quarter: 2014Q1

REPORT INFORMATION
  Report Type: Spontaneous
  Country: US (occurrence: None)
  Receive Date: 20140306
  Receipt Date: 20140306
  Transmission Date: 20141002
  Serious: Yes (Hospitalization, Disabling)
  Sender: FDA-Public Use
  Company Number: 163-21880-13022768

PATIENT
  Age: 75 Year
  Sex: Male

DRUGS (15)
  1. REVLIMID (LENALIDOMIDE) (5 MILLIGRAM, CAPSULES) [Suspect]
     Indication: 5Q MINUS SYNDROME
     Route: 048
     Dates: start: 20130111, end: 20130217
  2. HYDROCODONE-ACETAMINOPHEN (PROCET/USA/) [Concomitant]
  3. PROMETHAZINE HCL (PROMETHAZINE HYDROCHLORIDE) [Concomitant]
  4. VITAMIN B-1 (THIAMINE HYDROCHLORIDE) [Concomitant]
  5. ALBUTEROL (SALBUTAMOL) [Concomitant]
  6. TAMULOSIN [Concomitant]
  7. PHENERGAN (PROMETHAZINE HYDROCHLORIDE) [Concomitant]
  8. PRILOSEC (OMEPRAZOLE) [Concomitant]
  9. HYDROCODONE [Concomitant]
  10. FOLBEE (TRIOBE) [Concomitant]
  11. PREDNISONE [Concomitant]
  12. RELAMINE [Concomitant]
  13. VITAMIN B6 (PYRIDOXINE HYDROCHLORIDE) [Concomitant]
  14. OXYGEN [Concomitant]
  15. RED BLOOD CELLS [Concomitant]

REACTIONS (2)
  - Chronic obstructive pulmonary disease [None]
  - Malnutrition [None]
